FAERS Safety Report 5380809-0 (Version None)
Quarter: 2007Q3

REPORT INFORMATION
  Report Type: 
  Country: None (occurrence: None)
  Receive Date: 20070706
  Receipt Date: 20070702
  Transmission Date: 20080115
  Serious: Yes (Other)
  Sender: FDA-Public Use
  Company Number: US-ASTRAZENECA-2006UW22075

PATIENT
  Age: 525 Month
  Sex: Female
  Weight: 118.6 kg

DRUGS (6)
  1. SEROQUEL [Suspect]
     Indication: SCHIZOPHRENIA
     Route: 048
     Dates: start: 20040519, end: 20040701
  2. SEROQUEL [Suspect]
     Indication: DEPRESSION
     Route: 048
     Dates: start: 20040519, end: 20040701
  3. HALDOL [Concomitant]
     Dates: start: 20040605
  4. RISPERDAL [Concomitant]
     Dates: start: 20001011
  5. TRILAFON [Concomitant]
     Dates: start: 20011024
  6. ZYPREXA [Concomitant]
     Dates: start: 20010103

REACTIONS (2)
  - DIABETES MELLITUS [None]
  - LEUKAEMIA [None]
